FAERS Safety Report 19050469 (Version 1)
Quarter: 2021Q1

REPORT INFORMATION
  Report Type: Report from Study
  Country: US (occurrence: US)
  Receive Date: 20210324
  Receipt Date: 20210324
  Transmission Date: 20210420
  Serious: Yes (Hospitalization)
  Sender: FDA-Public Use
  Company Number: US-SA-2021SA010304

PATIENT
  Age: 70 Year
  Sex: Female

DRUGS (1)
  1. SARILUMAB [Suspect]
     Active Substance: SARILUMAB
     Indication: RHEUMATOID ARTHRITIS
     Dosage: 200 MG, QOW
     Route: 058
     Dates: end: 20201207

REACTIONS (8)
  - Pruritus [Recovered/Resolved]
  - Dysuria [Recovered/Resolved]
  - Burning sensation [Recovered/Resolved]
  - Swelling [Recovered/Resolved]
  - Mobility decreased [Recovered/Resolved]
  - Asthenia [Not Recovered/Not Resolved]
  - Injection site infection [Recovered/Resolved]
  - Pyrexia [Recovered/Resolved]

NARRATIVE: CASE EVENT DATE: 202012
